FAERS Safety Report 8943611 (Version 1)
Quarter: 2012Q4

REPORT INFORMATION
  Report Type: 
  Country: US (occurrence: US)
  Receive Date: 20121203
  Receipt Date: 20121203
  Transmission Date: 20130627
  Serious: Yes (Other)
  Sender: FDA-Public Use
  Company Number: US-TEVA-373285USA

PATIENT
  Sex: Male

DRUGS (2)
  1. TRISENOX [Suspect]
     Route: 042
  2. ATRA [Concomitant]

REACTIONS (2)
  - Acute promyelocytic leukaemia differentiation syndrome [Unknown]
  - Weight increased [Unknown]
